FAERS Safety Report 17980391 (Version 2)
Quarter: 2022Q2

REPORT INFORMATION
  Report Type: Spontaneous
  Country: CA (occurrence: CA)
  Receive Date: 20200703
  Receipt Date: 20220415
  Transmission Date: 20220721
  Serious: Yes (Death, Life-Threatening, Other)
  Sender: FDA-Public Use
  Company Number: CA-BAXTER-2019BAX005498

PATIENT
  Age: 44 Year
  Sex: Female

DRUGS (9)
  1. CYCLOPHOSPHAMIDE [Suspect]
     Active Substance: CYCLOPHOSPHAMIDE
     Indication: Burkitt^s lymphoma
     Dosage: CODOX-M/IVAC PROTOCOL PLUS RITUXIMAB REGIMEN
     Route: 065
  2. IFEX [Suspect]
     Active Substance: IFOSFAMIDE
     Indication: Burkitt^s lymphoma
     Dosage: CODOX-M/IVAC PROTOCOL PLUS RITUXIMAB REGIMEN
     Route: 065
  3. DOXORUBICIN HYDROCHLORIDE [Suspect]
     Active Substance: DOXORUBICIN HYDROCHLORIDE
     Indication: Burkitt^s lymphoma
     Dosage: CODOX-M/IVAC PROTOCOL PLUS RITUXIMAB REGIMEN
     Route: 065
  4. VINCRISTINE [Suspect]
     Active Substance: VINCRISTINE
     Indication: Burkitt^s lymphoma
     Dosage: CODOX-M/IVAC PROTOCOL PLUS RITUXIMAB REGIMEN
     Route: 065
  5. METHOTREXATE [Suspect]
     Active Substance: METHOTREXATE
     Indication: Burkitt^s lymphoma
     Dosage: CODOX-M/IVAC PROTOCOL PLUS RITUXIMAB REGIMEN
     Route: 065
  6. LEUCOVORIN [Suspect]
     Active Substance: LEUCOVORIN
     Indication: Burkitt^s lymphoma
     Dosage: CODOX-M/IVAC PROTOCOL PLUS RITUXIMAB REGIMEN
     Route: 065
  7. ETOPOSIDE [Suspect]
     Active Substance: ETOPOSIDE
     Indication: Burkitt^s lymphoma
     Dosage: CODOX-M/IVAC PROTOCOL PLUS RITUXIMAB REGIMEN
     Route: 065
  8. CYTARABINE [Suspect]
     Active Substance: CYTARABINE
     Indication: Burkitt^s lymphoma
     Dosage: CODOX-M/IVAC PROTOCOL PLUS RITUXIMAB REGIMEN
     Route: 065
  9. RITUXIMAB [Suspect]
     Active Substance: RITUXIMAB
     Indication: Burkitt^s lymphoma
     Dosage: CODOX-M/IVAC PROTOCOL PLUS RITUXIMAB REGIMEN
     Route: 065

REACTIONS (3)
  - Myelodysplastic syndrome [Fatal]
  - Acute myeloid leukaemia [Fatal]
  - Gene mutation [Unknown]
